FAERS Safety Report 24760659 (Version 1)
Quarter: 2024Q4

REPORT INFORMATION
  Report Type: Spontaneous
  Country: GB (occurrence: GB)
  Receive Date: 20241220
  Receipt Date: 20241220
  Transmission Date: 20250115
  Serious: Yes (Hospitalization, Disabling, Other)
  Sender: ELI LILLY AND COMPANY
  Company Number: None

PATIENT
  Age: 61 Year
  Sex: Female

DRUGS (1)
  1. DULOXETINE HYDROCHLORIDE [Suspect]
     Active Substance: DULOXETINE HYDROCHLORIDE
     Indication: Pain
     Dosage: UNK, UNKNOWN (90)
     Route: 065

REACTIONS (13)
  - Heart rate [Not Recovered/Not Resolved]
  - Brain fog [Not Recovered/Not Resolved]
  - Blood pressure measurement [Not Recovered/Not Resolved]
  - Electric shock sensation [Unknown]
  - Illness [Recovered/Resolved with Sequelae]
  - Dizziness [Not Recovered/Not Resolved]
  - Suicidal ideation [Recovered/Resolved with Sequelae]
  - Headache [Not Recovered/Not Resolved]
  - Anger [Recovered/Resolved with Sequelae]
  - Tremor [Not Recovered/Not Resolved]
  - Hallucination [Not Recovered/Not Resolved]
  - Off label use [Unknown]
  - Inappropriate schedule of product discontinuation [Unknown]
